FAERS Safety Report 16773715 (Version 1)
Quarter: 2019Q3

REPORT INFORMATION
  Report Type: Spontaneous
  Country: US (occurrence: US)
  Receive Date: 20190904
  Receipt Date: 20190904
  Transmission Date: 20191005
  Serious: Yes (Other)
  Sender: FDA-Public Use
  Company Number: PHHY2019US201428

PATIENT
  Age: 59 Year
  Sex: Male

DRUGS (1)
  1. FUROSEMIDE. [Suspect]
     Active Substance: FUROSEMIDE
     Indication: CARDIAC FAILURE
     Dosage: UNK
     Route: 065

REACTIONS (5)
  - Rash pruritic [Unknown]
  - Erythema [Unknown]
  - Dermatomyositis [Unknown]
  - Product use in unapproved indication [Unknown]
  - Periorbital oedema [Unknown]
